FAERS Safety Report 9972697 (Version 1)
Quarter: 2014Q1

REPORT INFORMATION
  Report Type: Spontaneous
  Country: US (occurrence: US)
  Receive Date: 20140306
  Receipt Date: 20140306
  Transmission Date: 20141002
  Serious: Yes (Other)
  Sender: FDA-Public Use
  Company Number: US-JNJFOC-20140218094

PATIENT
  Age: 56 Year
  Sex: Female
  Weight: 68.04 kg

DRUGS (5)
  1. XARELTO [Suspect]
     Indication: PULMONARY EMBOLISM
     Route: 048
     Dates: start: 20140130, end: 20140218
  2. BIOTIN [Concomitant]
     Route: 048
  3. LOVASTATIN [Concomitant]
     Route: 048
  4. COENZYME Q10 [Concomitant]
     Route: 048
  5. B VITAMIN COMPLEX [Concomitant]
     Route: 048

REACTIONS (1)
  - Alopecia [Unknown]
